FAERS Safety Report 7771121-0 (Version None)
Quarter: 2011Q3

REPORT INFORMATION
  Report Type: 
  Country: None (occurrence: None)
  Receive Date: 20110922
  Receipt Date: 20110916
  Transmission Date: 20111222
  Serious: Yes (Other)
  Sender: FDA-Public Use
  Company Number: SE-PFIZER INC-2011222534

PATIENT
  Age: 52 Year
  Sex: Male

DRUGS (8)
  1. FLUOXETINE [Concomitant]
     Dosage: UNK
  2. MIRTAZAPINE [Concomitant]
     Dosage: UNK
  3. LYRICA [Concomitant]
  4. CLONAZEPAM [Concomitant]
     Dosage: UNK
  5. OXAZEPAM [Concomitant]
  6. ANTABUSE [Concomitant]
     Dosage: UNK
  7. ALPRAZOLAM [Suspect]
  8. DIAZEPAM [Suspect]

REACTIONS (1)
  - SUICIDE ATTEMPT [None]
